FAERS Safety Report 8148646 (Version 3)
Quarter: 2013Q2

REPORT INFORMATION
  Report Type: Spontaneous
  Country: US (occurrence: US)
  Receive Date: 20110922
  Receipt Date: 20130409
  Transmission Date: 20140414
  Serious: Yes (Other)
  Sender: FDA-Public Use
  Company Number: US-ASTRAZENECA-2011SE12551

PATIENT
  Age: 42 Year
  Sex: Female

DRUGS (19)
  1. SEROQUEL [Suspect]
     Dosage: 4 HS
     Route: 048
     Dates: start: 20011229
  2. SEROQUEL [Suspect]
     Route: 048
     Dates: start: 20021202
  3. ZYPREXA [Concomitant]
     Dates: start: 19981104
  4. ZYPREXA [Concomitant]
     Dates: start: 19990210
  5. PROZAC [Concomitant]
     Dates: start: 19981229
  6. TRAZADONE [Concomitant]
     Dates: start: 19990128
  7. TRAZADONE [Concomitant]
     Dates: start: 19990210
  8. WELLBUTRIN SR [Concomitant]
     Dates: start: 20021126
  9. HYDROXYZINE PAM [Concomitant]
     Dates: start: 20021126
  10. NEURONTIN [Concomitant]
     Dosage: 2 AM 4 HS
     Dates: start: 200112
  11. NEURONTIN [Concomitant]
     Dates: start: 20021126
  12. NEURONTIN [Concomitant]
     Dates: start: 20030324
  13. ZOLOFT [Concomitant]
     Dates: start: 20030311
  14. ZOLOFT [Concomitant]
     Dates: start: 20030331
  15. REGLAN [Concomitant]
     Dosage: 10 BID
     Dates: start: 20011229
  16. NEXIUM [Concomitant]
     Route: 048
     Dates: start: 20011229
  17. SYNTHROID [Concomitant]
     Dosage: 0.175
     Dates: start: 20011229
  18. CELEXA [Concomitant]
     Dates: start: 20011229
  19. ATIVAN [Concomitant]
     Dates: start: 20011229

REACTIONS (3)
  - Pancreatitis [Unknown]
  - Diabetic coma [Unknown]
  - Type 2 diabetes mellitus [Unknown]
